FAERS Safety Report 18685265 (Version 1)
Quarter: 2020Q4

REPORT INFORMATION
  Report Type: Spontaneous
  Country: US (occurrence: US)
  Receive Date: 20201231
  Receipt Date: 20201231
  Transmission Date: 20210114
  Serious: No
  Sender: FDA-Public Use
  Company Number: US-APOTEX-2020AP024779

PATIENT
  Age: 69 Year
  Sex: Male

DRUGS (2)
  1. IMIQUIMOD. [Suspect]
     Active Substance: IMIQUIMOD
     Indication: MALIGNANT MELANOMA
     Dosage: UNK (5 PERCENT 5 TIMES PER WEEK)
     Route: 061
  2. TRETINOIN. [Concomitant]
     Active Substance: TRETINOIN
     Indication: MALIGNANT MELANOMA
     Dosage: UNK (DAILY FOR TWO WEEKS)
     Route: 061

REACTIONS (3)
  - Pruritus [Recovered/Resolved]
  - Erythema [Recovered/Resolved]
  - Off label use [Unknown]
